FAERS Safety Report 5390165-X (Version None)
Quarter: 2007Q3

REPORT INFORMATION
  Report Type: 
  Country: None (occurrence: None)
  Receive Date: 20070716
  Receipt Date: 20070716
  Transmission Date: 20080115
  Serious: Yes (Life-Threatening)
  Sender: FDA-Public Use
  Company Number: None

PATIENT
  Sex: Female
  Weight: 101.6057 kg

DRUGS (1)
  1. ALLI -ORLISTAT-   60 MG  GLAXOSMITHKLINE [Suspect]
     Indication: WEIGHT CONTROL
     Dosage: 1 PILL 3 TIMES A DAY PO
     Route: 048
     Dates: start: 20070619, end: 20070710

REACTIONS (6)
  - BLEEDING TIME PROLONGED [None]
  - CONTUSION [None]
  - GINGIVITIS [None]
  - HAEMATOMA [None]
  - HAEMORRHAGIC DIATHESIS [None]
  - SCAB [None]
